FAERS Safety Report 4927298-5 (Version None)
Quarter: 2006Q1

REPORT INFORMATION
  Report Type: 
  Country: None (occurrence: None)
  Receive Date: 20060228
  Receipt Date: 20050609
  Transmission Date: 20060701
  Serious: No
  Sender: FDA-Public Use
  Company Number: US-GLAXOSMITHKLINE-A0561996A

PATIENT
  Sex: Female

DRUGS (5)
  1. IMITREX [Suspect]
     Indication: MIGRAINE
     Dosage: 6MGML SINGLE DOSE
     Route: 058
     Dates: start: 20050606
  2. BIRTH CONTROL PILLS [Concomitant]
  3. PAXIL [Concomitant]
  4. SPIRONOLACTONE [Concomitant]
  5. IMITREX [Concomitant]
     Route: 048

REACTIONS (3)
  - FEELING HOT [None]
  - HEADACHE [None]
  - NAUSEA [None]
